FAERS Safety Report 4610053-3 (Version None)
Quarter: 2005Q1

REPORT INFORMATION
  Report Type: 
  Country: None (occurrence: None)
  Receive Date: 20050315
  Receipt Date: 20050307
  Transmission Date: 20050727
  Serious: Yes (Disabling)
  Sender: FDA-Public Use
  Company Number: 2005AC00402

PATIENT
  Age: 64 Year
  Sex: Male

DRUGS (6)
  1. SEROQUEL [Suspect]
     Indication: PSYCHOTIC DISORDER
     Dosage: 25 MG BID PO
     Route: 048
  2. SEROQUEL [Suspect]
     Indication: PSYCHOTIC DISORDER
     Dosage: 400 MG BID PO
     Route: 048
  3. SEROQUEL [Suspect]
     Indication: PSYCHOTIC DISORDER
     Dosage: 300 MG BID PO
     Route: 048
  4. SEROQUEL [Suspect]
     Indication: PSYCHOTIC DISORDER
     Dosage: 200 MG BID PO
     Route: 048
  5. SEROQUEL [Suspect]
     Indication: PSYCHOTIC DISORDER
     Dosage: 100 MG BID PO
     Route: 048
  6. CITALOPRAM HYDROBROMIDE [Concomitant]

REACTIONS (8)
  - CEREBRAL ATROPHY [None]
  - DIFFICULTY IN WALKING [None]
  - ELECTROENCEPHALOGRAM ABNORMAL [None]
  - FEEDING DISORDER [None]
  - MYOCLONUS [None]
  - POSTURE ABNORMAL [None]
  - PSYCHOTIC DISORDER [None]
  - SPEECH DISORDER [None]
